FAERS Safety Report 7110945-X (Version None)
Quarter: 2010Q4

REPORT INFORMATION
  Report Type: 
  Country: None (occurrence: None)
  Receive Date: 20101118
  Receipt Date: 20091007
  Transmission Date: 20110411
  Serious: Yes (Other)
  Sender: FDA-Public Use
  Company Number: US-TEVA-211737USA

PATIENT
  Sex: Male

DRUGS (1)
  1. ALBUTEROL SULFATE AUTOHALER [Suspect]
     Indication: ASTHMA
     Route: 055

REACTIONS (10)
  - ASTHMA [None]
  - COLD SWEAT [None]
  - COUGH [None]
  - CYANOSIS [None]
  - DRUG INEFFECTIVE [None]
  - DYSPNOEA [None]
  - FEELING COLD [None]
  - USE OF ACCESSORY RESPIRATORY MUSCLES [None]
  - VOMITING [None]
  - WHEEZING [None]
